FAERS Safety Report 12235129 (Version 1)
Quarter: 2016Q2

REPORT INFORMATION
  Report Type: Spontaneous
  Country: None (occurrence: US)
  Receive Date: 20160404
  Receipt Date: 20160404
  Transmission Date: 20160815
  Serious: Yes (Other)
  Sender: FDA-Public Use
  Company Number: US-SEBELA IRELAND LIMITED-2016SEB00075

PATIENT
  Age: 37 Year

DRUGS (1)
  1. IMURAN [Suspect]
     Active Substance: AZATHIOPRINE

REACTIONS (1)
  - Lupus-like syndrome [Unknown]
